FAERS Safety Report 12071098 (Version 1)
Quarter: 2016Q1

REPORT INFORMATION
  Report Type: Report from Study
  Country: US (occurrence: US)
  Receive Date: 20160211
  Receipt Date: 20160211
  Transmission Date: 20160526
  Serious: Yes (Other)
  Sender: FDA-Public Use
  Company Number: US-ABBVIE-16K-163-1556073-00

PATIENT
  Sex: Male

DRUGS (1)
  1. HUMIRA [Suspect]
     Active Substance: ADALIMUMAB
     Indication: CROHN^S DISEASE
     Route: 058

REACTIONS (8)
  - Pain in extremity [Unknown]
  - Pain [Unknown]
  - Eye pain [Unknown]
  - Carpal tunnel syndrome [Unknown]
  - Demyelination [Unknown]
  - Headache [Unknown]
  - Memory impairment [Unknown]
  - Back pain [Unknown]

NARRATIVE: CASE EVENT DATE: 2014
